FAERS Safety Report 4292643-3 (Version None)
Quarter: 2004Q1

REPORT INFORMATION
  Report Type: 
  Country: None (occurrence: None)
  Receive Date: 20040211
  Receipt Date: 20040202
  Transmission Date: 20041129
  Serious: Yes (Hospitalization)
  Sender: FDA-Public Use
  Company Number: PHRM2004FR00709

PATIENT
  Age: 23 Year
  Sex: Female

DRUGS (4)
  1. NEORAL [Suspect]
     Indication: HEART TRANSPLANT
     Dosage: 200 MG DAILY
     Route: 048
     Dates: start: 20030305, end: 20030625
  2. IMUREL [Suspect]
     Indication: HEART TRANSPLANT
     Dosage: 50 MG, QD
     Route: 048
     Dates: start: 20001115, end: 20030625
  3. PROGRAF [Suspect]
     Indication: HEART TRANSPLANT
     Dates: end: 20030304
  4. LUTERAN [Suspect]

REACTIONS (3)
  - ABORTION LATE [None]
  - CERVICAL INCOMPETENCE [None]
  - DRUG EXPOSURE DURING PREGNANCY [None]
